FAERS Safety Report 5257964-6 (Version None)
Quarter: 2007Q1

REPORT INFORMATION
  Report Type: 
  Country: None (occurrence: None)
  Receive Date: 20070307
  Receipt Date: 20061115
  Transmission Date: 20070707
  Serious: No
  Sender: FDA-Public Use
  Company Number: US-GLAXOSMITHKLINE-A0627528A

PATIENT
  Sex: Male

DRUGS (1)
  1. REQUIP [Suspect]
     Indication: DRUG USE FOR UNKNOWN INDICATION
     Dosage: 1MG PER DAY
     Route: 048
     Dates: start: 20051101

REACTIONS (1)
  - DRUG EFFECT DECREASED [None]
